FAERS Safety Report 11927164 (Version 1)
Quarter: 2016Q1

REPORT INFORMATION
  Report Type: Spontaneous
  Country: US (occurrence: None)
  Receive Date: 20160115
  Receipt Date: 20160115
  Transmission Date: 20160526
  Serious: Yes (Other)
  Sender: FDA-Public Use
  Company Number: None

PATIENT
  Age: 43 Year
  Sex: Female

DRUGS (1)
  1. HUMIRA [Suspect]
     Active Substance: ADALIMUMAB
     Indication: CROHN^S DISEASE
     Dosage: ROUTE: SUBCUTANEOUS 057  DOSE FORM: INJECTABLE  FREQUENCY: EVERY OTHER WEEK
     Route: 058
     Dates: start: 20151209

REACTIONS (4)
  - Gastric disorder [None]
  - Impaired work ability [None]
  - Drug ineffective [None]
  - Alopecia [None]

NARRATIVE: CASE EVENT DATE: 20160101
